FAERS Safety Report 12568365 (Version 1)
Quarter: 2016Q3

REPORT INFORMATION
  Report Type: Spontaneous
  Country: CO (occurrence: CO)
  Receive Date: 20160718
  Receipt Date: 20160718
  Transmission Date: 20161109
  Serious: Yes (Hospitalization)
  Sender: FDA-Public Use
  Company Number: PHHY2016CO096684

PATIENT
  Sex: Male

DRUGS (1)
  1. COMBAREN [Suspect]
     Active Substance: CODEINE PHOSPHATE\DICLOFENAC SODIUM
     Indication: PRODUCT USED FOR UNKNOWN INDICATION
     Route: 065

REACTIONS (1)
  - Spinal pain [Unknown]
